FAERS Safety Report 23304037 (Version 1)
Quarter: 2023Q4

REPORT INFORMATION
  Report Type: Spontaneous
  Country: US (occurrence: US)
  Receive Date: 20231218
  Receipt Date: 20231218
  Transmission Date: 20240110
  Serious: Yes (Hospitalization, Other)
  Sender: FDA-Public Use
  Company Number: US-GILEAD-2023-0655077

PATIENT
  Age: 69 Year
  Sex: Male

DRUGS (1)
  1. YESCARTA [Suspect]
     Active Substance: AXICABTAGENE CILOLEUCEL
     Indication: Diffuse large B-cell lymphoma
     Route: 065

REACTIONS (13)
  - Cardiorenal syndrome [Unknown]
  - C-reactive protein increased [Unknown]
  - Serum ferritin increased [Unknown]
  - Deep vein thrombosis [Unknown]
  - Neurotoxicity [Unknown]
  - Oxygen saturation decreased [Unknown]
  - Oedema peripheral [Unknown]
  - Myalgia [Unknown]
  - Memory impairment [Unknown]
  - Fatigue [Unknown]
  - Hypotension [Unknown]
  - Tremor [Unknown]
  - Pyrexia [Unknown]

NARRATIVE: CASE EVENT DATE: 20200217
